FAERS Safety Report 4959258-2 (Version None)
Quarter: 2006Q1

REPORT INFORMATION
  Report Type: 
  Country: None (occurrence: None)
  Receive Date: 20060331
  Receipt Date: 20060328
  Transmission Date: 20060701
  Serious: Yes (Hospitalization)
  Sender: FDA-Public Use
  Company Number: NL-SANOFI-SYNTHELABO-F01200600887

PATIENT
  Sex: Male

DRUGS (7)
  1. OXALIPLATIN [Suspect]
     Indication: COLORECTAL CANCER
     Route: 041
     Dates: start: 20051230, end: 20051230
  2. CAPECITABINE [Suspect]
     Indication: COLORECTAL CANCER
     Dosage: DAYS 1-14 (1250 MG/M2 AFTER CYCLE 6)
     Route: 048
     Dates: start: 20051230
  3. BEVACIZUMAB [Suspect]
     Indication: COLORECTAL CANCER
     Route: 041
     Dates: start: 20051230, end: 20051230
  4. VITAMIN B COMPLEX CAP [Concomitant]
  5. LOPERAMIDE [Concomitant]
  6. METOCLOPRAMIDE [Concomitant]
  7. BISODOL [Concomitant]

REACTIONS (3)
  - ANOREXIA [None]
  - CIRCULATORY COLLAPSE [None]
  - FUNGAL OESOPHAGITIS [None]
